FAERS Safety Report 5484281-1 (Version None)
Quarter: 2007Q4

REPORT INFORMATION
  Report Type: 
  Country: None (occurrence: None)
  Receive Date: 20071012
  Receipt Date: 20071012
  Transmission Date: 20080405
  Serious: Yes (Death)
  Sender: FDA-Public Use
  Company Number: AU-BOEHRINGER INGELHEIM PHARMACEUTICALS, INC.-2007-BP-22544AU

PATIENT

DRUGS (1)
  1. MOBIC [Suspect]

REACTIONS (1)
  - GASTROINTESTINAL PERFORATION [None]
